FAERS Safety Report 15347939 (Version 2)
Quarter: 2025Q4

REPORT INFORMATION
  Report Type: Spontaneous
  Country: US (occurrence: US)
  Receive Date: 20180904
  Receipt Date: 20251024
  Transmission Date: 20260119
  Serious: Yes (Hospitalization, Other)
  Sender: QILU ANTIBIOTICS PHARMACEUTICAL
  Company Number: None

PATIENT
  Age: 62 Year
  Sex: Female

DRUGS (2)
  1. CEFEPIME HYDROCHLORIDE [Suspect]
     Active Substance: CEFEPIME HYDROCHLORIDE
     Indication: Pneumonia
     Dosage: UNK
     Route: 065
     Dates: start: 2017
  2. TACROLIMUS [Suspect]
     Active Substance: TACROLIMUS
     Indication: Product used for unknown indication
     Dosage: UNK
     Route: 065
     Dates: start: 2017

REACTIONS (8)
  - Agitation [Recovered/Resolved]
  - Neurotoxicity [Recovered/Resolved]
  - Mood altered [Recovered/Resolved]
  - Moaning [Recovered/Resolved]
  - Muscle twitching [Recovered/Resolved]
  - Staring [Recovered/Resolved]
  - Electroencephalogram abnormal [Recovered/Resolved]
  - Aphasia [Recovered/Resolved]
